FAERS Safety Report 9316388 (Version 1)
Quarter: 2013Q2

REPORT INFORMATION
  Report Type: Spontaneous
  Country: ES (occurrence: ES)
  Receive Date: 20130530
  Receipt Date: 20130530
  Transmission Date: 20140414
  Serious: No
  Sender: FDA-Public Use
  Company Number: ES-JNJFOC-20130510944

PATIENT
  Age: 77 Year
  Sex: Female

DRUGS (1)
  1. DUROGESIC [Suspect]
     Indication: BACK PAIN
     Route: 062
     Dates: start: 20130513

REACTIONS (1)
  - Inappropriate schedule of drug administration [Unknown]
